FAERS Safety Report 4199176 (Version 2)
Quarter: 2012Q4

REPORT INFORMATION
  Report Type: 
  Country: US (occurrence: US)
  Receive Date: 20040830
  Receipt Date: 20121218
  Transmission Date: 20130627
  Serious: No
  Sender: FDA-Public Use
  Company Number: US-BRISTOL-MYERS SQUIBB COMPANY-12654067

PATIENT
  Age: 55 Year
  Sex: Female
  Weight: 56.69 kg

DRUGS (4)
  1. ABILIFY TABS 2 MG [Suspect]
     Indication: AGITATION
     Dosage: Intial 1df=1/8 of 2mg tab. Restarted with 1/4 of 2mg tab
Lot#2B73430 ,Feb14
     Route: 048
  2. ABILIFY TABS 2 MG [Suspect]
     Indication: DEPRESSION
     Dosage: Intial 1df=1/8 of 2mg tab. Restarted with 1/4 of 2mg tab
Lot#2B73430 ,Feb14
     Route: 048
  3. LEXAPRO [Concomitant]
  4. LEVOXYL [Concomitant]

REACTIONS (4)
  - Oedema peripheral [Unknown]
  - Skin discolouration [Unknown]
  - Osteoarthritis [Unknown]
  - Feeling abnormal [Unknown]
